FAERS Safety Report 5904824-0 (Version None)
Quarter: 2008Q3

REPORT INFORMATION
  Report Type: 
  Country: None (occurrence: None)
  Receive Date: 20080909
  Receipt Date: 20080623
  Transmission Date: 20090109
  Serious: Yes (Death)
  Sender: FDA-Public Use
  Company Number: 163-20785-08050379

PATIENT
  Age: 77 Year
  Sex: Female

DRUGS (21)
  1. THALOMID [Suspect]
     Indication: MULTIPLE MYELOMA
     Dosage: SEE IMAGE
     Route: 048
     Dates: start: 20050314, end: 20050501
  2. THALOMID [Suspect]
     Indication: MULTIPLE MYELOMA
     Dosage: SEE IMAGE
     Route: 048
     Dates: start: 20050524, end: 20050801
  3. THALOMID [Suspect]
     Indication: MULTIPLE MYELOMA
     Dosage: SEE IMAGE
     Route: 048
     Dates: start: 20051011, end: 20070201
  4. THALOMID [Suspect]
     Indication: MULTIPLE MYELOMA
     Dosage: SEE IMAGE
     Route: 048
     Dates: start: 20070601, end: 20070601
  5. THALOMID [Suspect]
     Indication: MULTIPLE MYELOMA
     Dosage: SEE IMAGE
     Route: 048
     Dates: start: 20070920, end: 20080504
  6. BLOOD (BLOOD, WHOLE) [Concomitant]
  7. COMPAZINE [Concomitant]
  8. ZANTAC 150 [Concomitant]
  9. DARVON [Concomitant]
  10. CLONIDIINE (CLONIDINE) [Concomitant]
  11. POTASSIUM CHLORIDE [Concomitant]
  12. ATENOLOL [Concomitant]
  13. NORVASC [Concomitant]
  14. CALCIUM CARBONATE (CALCIUM CARBONATE) [Concomitant]
  15. DECADRON [Concomitant]
  16. ACETAMINOPHEN [Concomitant]
  17. BENADRYL [Concomitant]
  18. SODIUM BICARBONATE IN PLASTIC CONTAINER [Concomitant]
  19. MAGACE (MEGESTROL ACETATE) [Concomitant]
  20. SODIUM CHLORIDE [Concomitant]
  21. HEPARIN [Concomitant]

REACTIONS (1)
  - CEREBROVASCULAR ACCIDENT [None]
